FAERS Safety Report 7608979-1 (Version None)
Quarter: 2011Q3

REPORT INFORMATION
  Report Type: 
  Country: None (occurrence: None)
  Receive Date: 20110714
  Receipt Date: 20110707
  Transmission Date: 20111222
  Serious: Yes (Other)
  Sender: FDA-Public Use
  Company Number: GB-GLAXOSMITHKLINE-B0732877A

PATIENT
  Age: 67 Year
  Sex: Male

DRUGS (1)
  1. ACITRETIN [Suspect]
     Indication: PRODUCT USED FOR UNKNOWN INDICATION
     Route: 048

REACTIONS (2)
  - CATARACT [None]
  - VISUAL ACUITY REDUCED [None]
